FAERS Safety Report 6655659-5 (Version None)
Quarter: 2010Q1

REPORT INFORMATION
  Report Type: 
  Country: None (occurrence: None)
  Receive Date: 20100329
  Receipt Date: 20100318
  Transmission Date: 20100710
  Serious: Yes (Other)
  Sender: FDA-Public Use
  Company Number: FR-GENENTECH-297842

PATIENT
  Sex: Female
  Weight: 63 kg

DRUGS (5)
  1. RITUXIMAB [Suspect]
     Indication: RHEUMATOID ARTHRITIS
     Dosage: 1 G, UNK
     Route: 042
     Dates: start: 20060301, end: 20081119
  2. ARAVA [Concomitant]
     Indication: RHEUMATOID ARTHRITIS
     Dosage: UNK
     Route: 048
     Dates: start: 20060601
  3. CORTANCYL [Concomitant]
     Indication: RHEUMATOID ARTHRITIS
     Dosage: 5 MG, UNK
     Route: 048
  4. OROCAL [Concomitant]
     Indication: OSTEOPOROSIS
     Dosage: UNK TABLET, UNK
     Route: 048
     Dates: start: 19981101
  5. FOSAMAX [Concomitant]
     Indication: DRUG USE FOR UNKNOWN INDICATION
     Dosage: UNK
     Dates: start: 19981101, end: 20080101

REACTIONS (1)
  - ECHINOCOCCIASIS [None]
